FAERS Safety Report 6341236-2 (Version None)
Quarter: 2009Q3

REPORT INFORMATION
  Report Type: 
  Country: None (occurrence: None)
  Receive Date: 20090904
  Receipt Date: 20090706
  Transmission Date: 20100115
  Serious: No
  Sender: FDA-Public Use
  Company Number: A0795481A

PATIENT
  Age: 80 Year
  Sex: Male

DRUGS (2)
  1. ROPINIROLE [Suspect]
     Indication: RESTLESS LEGS SYNDROME
     Dosage: 2MG PER DAY
     Route: 048
  2. ASTHMA MEDICATION [Concomitant]

REACTIONS (2)
  - TERMINAL INSOMNIA [None]
  - THERAPEUTIC RESPONSE DECREASED [None]
